FAERS Safety Report 21710925 (Version 1)
Quarter: 2022Q4

REPORT INFORMATION
  Report Type: Report from Study
  Country: AU (occurrence: AU)
  Receive Date: 20221212
  Receipt Date: 20221212
  Transmission Date: 20230112
  Serious: Yes (Hospitalization, Other)
  Sender: FDA-Public Use
  Company Number: AU-ABBVIE-4232183

PATIENT
  Age: 82 Year
  Sex: Male

DRUGS (1)
  1. LEUPROLIDE ACETATE [Suspect]
     Active Substance: LEUPROLIDE ACETATE
     Indication: Prostate cancer
     Route: 030
     Dates: start: 20220524

REACTIONS (6)
  - Dyspnoea [Unknown]
  - Cardiac pacemaker insertion [Unknown]
  - Dyschezia [Unknown]
  - Pain in extremity [Unknown]
  - Back pain [Unknown]
  - Oedema [Unknown]

NARRATIVE: CASE EVENT DATE: 20221201
